FAERS Safety Report 5115161-9 (Version None)
Quarter: 2006Q3

REPORT INFORMATION
  Report Type: 
  Country: None (occurrence: None)
  Receive Date: 20060926
  Receipt Date: 20060920
  Transmission Date: 20061208
  Serious: Yes (Hospitalization)
  Sender: FDA-Public Use
  Company Number: DE-SANOFI-SYNTHELABO-A04200600962

PATIENT
  Sex: Female
  Weight: 57 kg

DRUGS (7)
  1. MAGNESIUM GLUCONATE [Concomitant]
     Indication: PREMEDICATION
     Route: 065
     Dates: start: 20060627, end: 20060627
  2. KEVATRIL [Concomitant]
     Indication: PREMEDICATION
     Route: 042
     Dates: start: 20060627, end: 20060627
  3. FOLINIC ACID [Suspect]
     Indication: COLORECTAL CANCER
     Route: 041
     Dates: start: 20060627, end: 20060627
  4. FLUOROURACIL [Suspect]
     Indication: COLORECTAL CANCER
     Route: 041
     Dates: start: 20060627, end: 20060627
  5. CALCIUM CHLORIDE [Concomitant]
     Indication: PREMEDICATION
     Route: 065
     Dates: start: 20060627, end: 20060627
  6. ELOXATIN [Suspect]
     Indication: COLORECTAL CANCER
     Route: 041
     Dates: start: 20060627, end: 20060627
  7. DEXAMETHASONE [Concomitant]
     Indication: PREMEDICATION
     Route: 065
     Dates: start: 20060627, end: 20060627

REACTIONS (1)
  - OPTIC ISCHAEMIC NEUROPATHY [None]
